FAERS Safety Report 4943621-X (Version None)
Quarter: 2006Q1

REPORT INFORMATION
  Report Type: 
  Country: None (occurrence: None)
  Receive Date: 20060310
  Receipt Date: 20060223
  Transmission Date: 20060701
  Serious: Yes (Hospitalization)
  Sender: FDA-Public Use
  Company Number: B0396920A

PATIENT
  Age: 53 Year
  Sex: Female
  Weight: 58.8769 kg

DRUGS (4)
  1. FLOVENT [Suspect]
     Indication: EMPHYSEMA
     Dosage: 400 MCG/ TWICE PER DAY/INHALED
     Route: 055
     Dates: start: 20050802, end: 20050914
  2. SEREVENT ROTADISK (SALMETEROL XINAFOATE) [Suspect]
     Indication: EMPHYSEMA
     Dosage: 50 MCG/ TWICE PER DAY/ INHALED
     Route: 055
     Dates: start: 20050802, end: 20050914
  3. TIOTROPIUM (FORMULATION UNKNOWN) (TIOTROPIUM) [Suspect]
     Dosage: 18 MCG/ PER DAY/ INHALED
     Route: 055
     Dates: start: 20050802, end: 20050914
  4. THEOPHYLLINE [Suspect]
     Dosage: 400 MG/ PER DAY/ ORAL
     Route: 048
     Dates: start: 20050802, end: 20050914

REACTIONS (1)
  - EOSINOPHILIC PNEUMONIA [None]
